FAERS Safety Report 8046009 (Version 10)
Quarter: 2014Q4

REPORT INFORMATION
  Report Type: Spontaneous
  Country: US (occurrence: US)
  Receive Date: 20110720
  Receipt Date: 20141013
  Transmission Date: 20150529
  Serious: Yes (Life-Threatening, Hospitalization, Congenital Anomaly, Other)
  Sender: FDA-Public Use
  Company Number: US-PFIZER INC-2011159565

PATIENT
  Sex: Male
  Weight: 2.5 kg

DRUGS (9)
  1. AMBIEN [Concomitant]
     Active Substance: ZOLPIDEM TARTRATE
     Indication: SLEEP DISORDER
     Dosage: 5 MG, UNK
     Route: 064
     Dates: start: 20071106
  2. EFFEXOR XR [Suspect]
     Active Substance: VENLAFAXINE HYDROCHLORIDE
     Indication: DEPRESSION
     Dosage: 75 MG, UNK
     Route: 064
  3. FIORICET [Concomitant]
     Active Substance: ACETAMINOPHEN\BUTALBITAL\CAFFEINE
     Indication: SLEEP DISORDER
     Dosage: UNK
     Route: 064
     Dates: start: 20071106
  4. TYLENOL [Concomitant]
     Active Substance: ACETAMINOPHEN
     Indication: MIGRAINE
     Dosage: UNK
     Route: 064
     Dates: start: 20070507
  5. PROMETHAZINE [Concomitant]
     Active Substance: PROMETHAZINE\PROMETHAZINE HYDROCHLORIDE
     Dosage: 25 MG, UNK
     Route: 064
     Dates: start: 20070518
  6. EFFEXOR XR [Suspect]
     Active Substance: VENLAFAXINE HYDROCHLORIDE
     Dosage: 150 MG, DAILY
     Route: 064
     Dates: start: 20061205
  7. VENLAFAXINE HCL [Suspect]
     Active Substance: VENLAFAXINE HYDROCHLORIDE
     Dosage: UNK
     Route: 064
  8. ZOFRAN [Concomitant]
     Active Substance: ONDANSETRON HYDROCHLORIDE
     Indication: MIGRAINE
     Dosage: 8 MG, UNK
     Route: 064
     Dates: start: 20070507
  9. ARMOUR THYROID [Concomitant]
     Active Substance: THYROID, PORCINE\THYROID, UNSPECIFIED
     Indication: HYPOTHYROIDISM
     Dosage: 120 MG, UNK
     Route: 064

REACTIONS (20)
  - Transposition of the great vessels [Unknown]
  - Atrial tachycardia [Recovered/Resolved]
  - Shock [Unknown]
  - Malnutrition [Unknown]
  - Cardiac failure congestive [Unknown]
  - Patent ductus arteriosus [Unknown]
  - Atelectasis neonatal [Not Recovered/Not Resolved]
  - Atrial septal defect [Unknown]
  - Scoliosis [Not Recovered/Not Resolved]
  - Maternal exposure timing unspecified [Not Recovered/Not Resolved]
  - Acute kidney injury [Recovered/Resolved]
  - Respiratory distress [Unknown]
  - Tricuspid valve disease [Unknown]
  - Vocal cord paresis [Unknown]
  - Failure to thrive [Unknown]
  - Hypoplastic left heart syndrome [Not Recovered/Not Resolved]
  - Pulmonary vein stenosis [Unknown]
  - Congenital pulmonary artery anomaly [Unknown]
  - Cardiomegaly [Recovering/Resolving]
  - Transient ischaemic attack [Unknown]

NARRATIVE: CASE EVENT DATE: 20071130
